FAERS Safety Report 9165852 (Version 1)
Quarter: 2013Q1

REPORT INFORMATION
  Report Type: Spontaneous
  Country: SA (occurrence: None)
  Receive Date: 20130314
  Receipt Date: 20130314
  Transmission Date: 20140127
  Serious: Yes (Hospitalization)
  Sender: FDA-Public Use
  Company Number: None

PATIENT
  Age: 11 Year
  Sex: Male

DRUGS (3)
  1. METHOTREXATE [Suspect]
     Indication: T-CELL TYPE ACUTE LEUKAEMIA
     Route: 037
     Dates: start: 20120929
  2. METHOTREXATE [Suspect]
     Route: 037
     Dates: start: 20120929
  3. PEGRASPARIGINESE [Concomitant]

REACTIONS (3)
  - Grand mal convulsion [None]
  - Postictal state [None]
  - Somnolence [None]
